FAERS Safety Report 14914187 (Version 1)
Quarter: 2018Q2

REPORT INFORMATION
  Report Type: Spontaneous
  Country: NZ (occurrence: NZ)
  Receive Date: 20180518
  Receipt Date: 20180518
  Transmission Date: 20180711
  Serious: Yes (Hospitalization, Other)
  Sender: FDA-Public Use
  Company Number: NZ-ABBVIE-18K-118-2354524-00

PATIENT
  Age: 19 Year
  Sex: Female

DRUGS (11)
  1. HUMIRA [Suspect]
     Active Substance: ADALIMUMAB
     Indication: JUVENILE IDIOPATHIC ARTHRITIS
     Dosage: INCREASED
     Route: 058
  2. HUMIRA [Suspect]
     Active Substance: ADALIMUMAB
     Indication: COLITIS ULCERATIVE
     Route: 058
     Dates: end: 2016
  3. LEFLUNOMIDE. [Concomitant]
     Active Substance: LEFLUNOMIDE
     Indication: PRODUCT USED FOR UNKNOWN INDICATION
  4. CARBAMAZEPINE. [Concomitant]
     Active Substance: CARBAMAZEPINE
     Indication: EPILEPSY
  5. CODEINE [Concomitant]
     Active Substance: CODEINE
     Indication: PRODUCT USED FOR UNKNOWN INDICATION
  6. HUMIRA [Suspect]
     Active Substance: ADALIMUMAB
     Route: 058
     Dates: end: 2018
  7. SULPHASALAZINE [Concomitant]
     Active Substance: SULFASALAZINE
     Indication: PRODUCT USED FOR UNKNOWN INDICATION
     Dates: end: 2016
  8. PREDNISONE. [Concomitant]
     Active Substance: PREDNISONE
     Indication: PRODUCT USED FOR UNKNOWN INDICATION
  9. TOCILIZUMAB. [Concomitant]
     Active Substance: TOCILIZUMAB
     Indication: PRODUCT USED FOR UNKNOWN INDICATION
     Dates: start: 201703
  10. HUMULIN NOS [Concomitant]
     Active Substance: INSULIN HUMAN
     Indication: PRODUCT USED FOR UNKNOWN INDICATION
     Dosage: 46 UNITS IN THE MORNING AND 36 UNITS IN THE EVENING
  11. RITUXIMAB. [Concomitant]
     Active Substance: RITUXIMAB
     Indication: PRODUCT USED FOR UNKNOWN INDICATION
     Dates: start: 201707

REACTIONS (26)
  - C-reactive protein increased [Unknown]
  - Glycosylated haemoglobin increased [Unknown]
  - Agitation [Unknown]
  - Headache [Unknown]
  - Lupus-like syndrome [Unknown]
  - Depressed mood [Unknown]
  - Antinuclear antibody positive [Unknown]
  - Anxiety [Unknown]
  - Meningitis aseptic [Unknown]
  - Drug ineffective [Unknown]
  - Confusional state [Unknown]
  - Protein total increased [Unknown]
  - Headache [Unknown]
  - Faecal calprotectin increased [Unknown]
  - Red blood cell sedimentation rate increased [Unknown]
  - Liver function test abnormal [Unknown]
  - Groin abscess [Unknown]
  - Gastrointestinal disorder [Unknown]
  - Colitis ulcerative [Unknown]
  - Blood glucose increased [Unknown]
  - Quality of life decreased [Unknown]
  - Lymphocyte count increased [Unknown]
  - Arthritis [Unknown]
  - Epilepsy [Unknown]
  - Urinary tract infection [Unknown]
  - Arthropathy [Unknown]

NARRATIVE: CASE EVENT DATE: 2016
